FAERS Safety Report 9068350 (Version 1)
Quarter: 2013Q1

REPORT INFORMATION
  Report Type: Spontaneous
  Country: US (occurrence: None)
  Receive Date: 20130212
  Receipt Date: 20130212
  Transmission Date: 20140127
  Serious: Yes (Life-Threatening, Hospitalization, Disabling)
  Sender: FDA-Public Use
  Company Number: None

PATIENT
  Age: 59 Year
  Sex: Female
  Weight: 39.92 kg

DRUGS (2)
  1. BENICAR HCT 40 MG DAIICHI SANKYO [Suspect]
     Indication: HYPERTENSION
     Dosage: 1 TABLET  ONCE A DAY  PO
     Route: 048
     Dates: start: 20051215, end: 20110830
  2. BENICAR 20 MG DAIICHI SANKYO [Suspect]
     Indication: HYPERTENSION
     Dosage: 1/2 A TABLET  ONCE A DAY  PO
     Route: 048
     Dates: start: 20111030, end: 20130111

REACTIONS (3)
  - Diarrhoea [None]
  - Weight decreased [None]
  - Dehydration [None]
